FAERS Safety Report 24721266 (Version 3)
Quarter: 2025Q3

REPORT INFORMATION
  Report Type: Spontaneous
  Country: EU (occurrence: EU)
  Receive Date: 20241211
  Receipt Date: 20250803
  Transmission Date: 20251020
  Serious: Yes (Hospitalization, Other)
  Sender: ALEXION PHARMACEUTICALS
  Company Number: EU-SA-2024SA358893

PATIENT
  Age: 4 Month
  Sex: Female
  Weight: 7.7 kg

DRUGS (7)
  1. NIRSEVIMAB [Suspect]
     Active Substance: NIRSEVIMAB
     Indication: Respiratory syncytial virus bronchiolitis
     Route: 065
     Dates: start: 20240712, end: 20240712
  2. HUMAN HEPATITIS B VIRUS IMMUNE GLOBULIN [Concomitant]
     Active Substance: HUMAN HEPATITIS B VIRUS IMMUNE GLOBULIN
     Indication: Immunisation
     Route: 065
  3. HUMAN HEPATITIS B VIRUS IMMUNE GLOBULIN [Concomitant]
     Active Substance: HUMAN HEPATITIS B VIRUS IMMUNE GLOBULIN
  4. PNEUMOCOCCAL CONJUGATE VACCINE NOS [Concomitant]
     Active Substance: PNEUMOCOCCAL CONJUGATE VACCINE
     Indication: Immunisation
     Route: 065
  5. PNEUMOCOCCAL CONJUGATE VACCINE NOS [Concomitant]
     Active Substance: PNEUMOCOCCAL CONJUGATE VACCINE
     Route: 065
  6. DTP HB [Concomitant]
     Indication: Immunisation
     Route: 065
  7. DTP HB [Concomitant]
     Route: 065

REACTIONS (12)
  - Respiratory syncytial virus bronchiolitis [Unknown]
  - Drug ineffective [Unknown]
  - Respiratory distress [Unknown]
  - Decreased appetite [Unknown]
  - Nasal congestion [Unknown]
  - Cough [Unknown]
  - Dyspnoea [Unknown]
  - Oxygen saturation decreased [Unknown]
  - Peripheral coldness [Unknown]
  - Cyanosis [Unknown]
  - Respiration abnormal [Unknown]
  - Wheezing [Unknown]

NARRATIVE: CASE EVENT DATE: 20240101
